FAERS Safety Report 23789794 (Version 1)
Quarter: 2024Q2

REPORT INFORMATION
  Report Type: Spontaneous
  Country: US (occurrence: None)
  Receive Date: 20240426
  Receipt Date: 20240426
  Transmission Date: 20240716
  Serious: Yes (Other)
  Sender: FDA-Public Use
  Company Number: None

PATIENT
  Age: 69 Year
  Sex: Female
  Weight: 73.9 kg

DRUGS (1)
  1. ENBREL [Suspect]
     Active Substance: BENZYL ALCOHOL\ETANERCEPT
     Dosage: 50 MG WEEKLY SUBCUTANEOUS?
     Route: 058
     Dates: start: 20231201

REACTIONS (2)
  - Bronchitis [None]
  - Sinusitis [None]

NARRATIVE: CASE EVENT DATE: 20240423
